FAERS Safety Report 9463150 (Version 2)
Quarter: 2013Q3

REPORT INFORMATION
  Report Type: Spontaneous
  Country: US (occurrence: US)
  Receive Date: 20130818
  Receipt Date: 20130911
  Transmission Date: 20140515
  Serious: Yes (Hospitalization, Other)
  Sender: FDA-Public Use
  Company Number: US-009507513-1308USA005407

PATIENT
  Age: 66 Year
  Sex: Female

DRUGS (3)
  1. PROVENTIL [Suspect]
     Indication: EMPHYSEMA
     Dosage: UNK, PRN
     Route: 055
     Dates: start: 200308
  2. ADVAIR [Concomitant]
  3. SPIRIVA [Concomitant]

REACTIONS (4)
  - Lung operation [Not Recovered/Not Resolved]
  - Dyspnoea [Not Recovered/Not Resolved]
  - Product quality issue [Unknown]
  - Drug dose omission [Unknown]
